FAERS Safety Report 10247491 (Version 3)
Quarter: 2014Q3

REPORT INFORMATION
  Report Type: Spontaneous
  Country: US (occurrence: US)
  Receive Date: 20140619
  Receipt Date: 20140714
  Transmission Date: 20150326
  Serious: Yes (Other)
  Sender: FDA-Public Use
  Company Number: US-PFIZER INC-2014164134

PATIENT
  Age: 74 Year
  Sex: Female
  Weight: 71.66 kg

DRUGS (3)
  1. LIPITOR [Suspect]
     Active Substance: ATORVASTATIN CALCIUM
     Indication: PROPHYLAXIS
     Dosage: 10 MG, DAILY
  2. CELEBREX [Suspect]
     Active Substance: CELECOXIB
     Dosage: UNK
  3. CELEBREX [Suspect]
     Active Substance: CELECOXIB
     Dosage: 200 MG, DAILY

REACTIONS (10)
  - Transient ischaemic attack [Unknown]
  - Cerebrovascular accident [Unknown]
  - Brain injury [Unknown]
  - Cerebral thrombosis [Unknown]
  - Cerebrovascular accident [Unknown]
  - Mental impairment [Unknown]
  - Weight decreased [Unknown]
  - Blood pressure abnormal [Unknown]
  - Aphasia [Unknown]
  - Hypertension [Unknown]

NARRATIVE: CASE EVENT DATE: 200210
